FAERS Safety Report 9640288 (Version 1)
Quarter: 2013Q4

REPORT INFORMATION
  Report Type: Spontaneous
  Country: US (occurrence: US)
  Receive Date: 20131023
  Receipt Date: 20131023
  Transmission Date: 20140711
  Serious: Yes (Hospitalization)
  Sender: FDA-Public Use
  Company Number: US-BAYER-2013-127183

PATIENT
  Age: 32 Year
  Sex: Female

DRUGS (11)
  1. YASMIN [Suspect]
  2. VALTREX [Concomitant]
     Dosage: 500 MG, BID
  3. PROZAC [Concomitant]
     Dosage: 90 MG, OW
  4. SOMA [Concomitant]
  5. DARVOCET [Concomitant]
  6. AVELOX [Concomitant]
  7. TORADOL [Concomitant]
     Dosage: 30 MG, UNK
     Route: 042
  8. DEMEROL [Concomitant]
     Dosage: 25 MG, UNK
     Route: 042
  9. PHENERGAN [Concomitant]
     Dosage: 12.5 MG, UNK
     Route: 042
  10. VICODIN [Concomitant]
  11. CELEBREX [Concomitant]
     Dosage: 100-200 MG
     Route: 048

REACTIONS (1)
  - Pulmonary embolism [None]
